FAERS Safety Report 7257822-1 (Version None)
Quarter: 2011Q1

REPORT INFORMATION
  Report Type: 
  Country: None (occurrence: None)
  Receive Date: 20110129
  Receipt Date: 20100514
  Transmission Date: 20110831
  Serious: No
  Sender: FDA-Public Use
  Company Number: US-ABBOTT-10P-163-0645021-00

PATIENT
  Age: 52 Year
  Sex: Male

DRUGS (4)
  1. UNKNOWN MEDICATION [Concomitant]
     Indication: BLOOD TRIGLYCERIDES
  2. HUMIRA [Suspect]
     Indication: PSORIASIS
     Dates: start: 20090501, end: 20100502
  3. HUMIRA [Suspect]
     Dosage: LOADING DOSE
  4. UNKNOWN MEDICATION [Concomitant]
     Indication: HYPERTENSION

REACTIONS (4)
  - CHILLS [None]
  - INFLUENZA LIKE ILLNESS [None]
  - URINARY TRACT INFECTION [None]
  - PYREXIA [None]
